FAERS Safety Report 21931637 (Version 1)
Quarter: 2023Q1

REPORT INFORMATION
  Report Type: Spontaneous
  Country: US (occurrence: None)
  Receive Date: 20230130
  Receipt Date: 20230130
  Transmission Date: 20230418
  Serious: No
  Sender: FDA-Public Use
  Company Number: None

PATIENT
  Sex: Male

DRUGS (1)
  1. VOTRIENT [Suspect]
     Active Substance: PAZOPANIB HYDROCHLORIDE
     Indication: Benign soft tissue neoplasm
     Dosage: FREQUENCY : DAILY;?
     Route: 048
     Dates: start: 20221229

REACTIONS (7)
  - Drug hypersensitivity [None]
  - Dyspnoea [None]
  - Urticaria [None]
  - Migraine [None]
  - Photophobia [None]
  - Chills [None]
  - Heat exhaustion [None]
